FAERS Safety Report 25714374 (Version 1)
Quarter: 2025Q3

REPORT INFORMATION
  Report Type: Report from Study
  Country: CN (occurrence: CN)
  Receive Date: 20250822
  Receipt Date: 20250822
  Transmission Date: 20251020
  Serious: Yes (Other)
  Sender: ROCHE
  Company Number: CN-ROCHE-10000366872

PATIENT
  Age: 49 Year
  Sex: Female
  Weight: 68 kg

DRUGS (17)
  1. POLATUZUMAB VEDOTIN [Suspect]
     Active Substance: POLATUZUMAB VEDOTIN
     Indication: Diffuse large B-cell lymphoma
     Route: 042
     Dates: start: 20250225, end: 20250225
  2. POLATUZUMAB VEDOTIN [Suspect]
     Active Substance: POLATUZUMAB VEDOTIN
     Route: 042
     Dates: start: 20250420, end: 20250420
  3. RITUXIMAB [Suspect]
     Active Substance: RITUXIMAB
     Indication: Diffuse large B-cell lymphoma
     Route: 042
     Dates: start: 20250417, end: 20250417
  4. RITUXIMAB [Suspect]
     Active Substance: RITUXIMAB
     Route: 042
     Dates: start: 20250222, end: 20250222
  5. IFOSFAMIDE [Suspect]
     Active Substance: IFOSFAMIDE
     Indication: Diffuse large B-cell lymphoma
     Route: 042
     Dates: start: 20250418, end: 20250420
  6. IFOSFAMIDE [Suspect]
     Active Substance: IFOSFAMIDE
     Route: 042
     Dates: start: 20250223, end: 20250225
  7. ETOPOSIDE [Suspect]
     Active Substance: ETOPOSIDE
     Indication: Diffuse large B-cell lymphoma
     Route: 042
     Dates: start: 20250418, end: 20250420
  8. ETOPOSIDE [Suspect]
     Active Substance: ETOPOSIDE
     Route: 042
     Dates: start: 20250223, end: 20250225
  9. CARBOPLATIN [Suspect]
     Active Substance: CARBOPLATIN
     Indication: Diffuse large B-cell lymphoma
     Route: 042
     Dates: start: 20250419, end: 20250419
  10. CARBOPLATIN [Suspect]
     Active Substance: CARBOPLATIN
     Route: 042
     Dates: start: 20250224, end: 20250224
  11. TISLELIZUMAB [Suspect]
     Active Substance: TISLELIZUMAB
     Indication: Diffuse large B-cell lymphoma
     Route: 042
     Dates: start: 20250421, end: 20250421
  12. TISLELIZUMAB [Suspect]
     Active Substance: TISLELIZUMAB
     Route: 042
     Dates: start: 20250226, end: 20250226
  13. LEUCOGEN [Concomitant]
     Active Substance: LEUCOGEN
  14. LEVOFLOXACIN [Concomitant]
     Active Substance: LEVOFLOXACIN
  15. CEFTAZIDIME [Concomitant]
     Active Substance: CEFTAZIDIME
  16. VORICONAZOLE [Concomitant]
     Active Substance: VORICONAZOLE
  17. MOXIFLOXACIN HYDROCHLORIDE [Concomitant]
     Active Substance: MOXIFLOXACIN HYDROCHLORIDE

REACTIONS (2)
  - Neutrophil count decreased [Recovered/Resolved]
  - White blood cell count decreased [Recovered/Resolved]

NARRATIVE: CASE EVENT DATE: 20250708
